FAERS Safety Report 7788918-3 (Version None)
Quarter: 2011Q3

REPORT INFORMATION
  Report Type: 
  Country: None (occurrence: None)
  Receive Date: 20110930
  Receipt Date: 20110919
  Transmission Date: 20111222
  Serious: Yes (Hospitalization)
  Sender: FDA-Public Use
  Company Number: FR-SANOFI-AVENTIS-2011SA060722

PATIENT
  Age: 56 Year
  Sex: Male

DRUGS (3)
  1. LOVENOX [Suspect]
     Indication: PULMONARY EMBOLISM
     Route: 058
     Dates: start: 20110501, end: 20110601
  2. LOVENOX [Suspect]
     Indication: DEEP VEIN THROMBOSIS
     Route: 058
     Dates: start: 20110501, end: 20110601
  3. PREVISCAN [Suspect]
     Route: 048
     Dates: start: 20110526, end: 20110609

REACTIONS (2)
  - HYPOPROTHROMBINAEMIA [None]
  - HAEMATOMA [None]
